FAERS Safety Report 16266042 (Version 1)
Quarter: 2019Q2

REPORT INFORMATION
  Report Type: Spontaneous
  Country: SA (occurrence: SA)
  Receive Date: 20190502
  Receipt Date: 20190502
  Transmission Date: 20190711
  Serious: Yes (Hospitalization, Other)
  Sender: FDA-Public Use
  Company Number: SA-GLAXOSMITHKLINE-SA2019GSK078429

PATIENT
  Age: 69 Year
  Sex: Male

DRUGS (3)
  1. DICLOFENAC SODIUM. [Suspect]
     Active Substance: DICLOFENAC SODIUM
     Indication: PAIN
     Dosage: UNK
     Route: 030
  2. ALBUTEROL. [Concomitant]
     Active Substance: ALBUTEROL
     Indication: ASTHMA
     Dosage: UNK, PRN
  3. SYMBICORT [Concomitant]
     Active Substance: BUDESONIDE\FORMOTEROL FUMARATE DIHYDRATE
     Indication: ASTHMA
     Dosage: UNK, PRN

REACTIONS (11)
  - Dyspnoea [Unknown]
  - Speech disorder [Unknown]
  - Blood phosphorus increased [Unknown]
  - Kounis syndrome [Unknown]
  - Respiratory distress [Unknown]
  - Wheezing [Unknown]
  - White blood cell count increased [Unknown]
  - Blood creatine phosphokinase increased [Unknown]
  - Asthma [Unknown]
  - Acute myocardial infarction [Unknown]
  - Tachypnoea [Unknown]
